FAERS Safety Report 18413032 (Version 3)
Quarter: 2020Q4

REPORT INFORMATION
  Report Type: Spontaneous
  Country: US (occurrence: US)
  Receive Date: 20201022
  Receipt Date: 20201214
  Transmission Date: 20210114
  Serious: No
  Sender: FDA-Public Use
  Company Number: US-SA-2020SA296590

PATIENT

DRUGS (2)
  1. PRALUENT [Suspect]
     Active Substance: ALIROCUMAB
     Indication: TYPE V HYPERLIPIDAEMIA
     Dosage: 75 MG, Q2W
     Route: 058
     Dates: start: 20200513, end: 2020
  2. PROPANE-1,2-DIOL [Concomitant]

REACTIONS (3)
  - Paraesthesia [Unknown]
  - Adverse event [Unknown]
  - Myalgia [Unknown]

NARRATIVE: CASE EVENT DATE: 20201012
